FAERS Safety Report 9586512 (Version 1)
Quarter: 2013Q4

REPORT INFORMATION
  Report Type: Spontaneous
  Country: US (occurrence: US)
  Receive Date: 20131003
  Receipt Date: 20131003
  Transmission Date: 20140711
  Serious: No
  Sender: FDA-Public Use
  Company Number: US-B.I. PHARMACEUTICALS,INC./RIDGEFIELD-2013-BI-30727BP

PATIENT
  Sex: Male
  Weight: 87 kg

DRUGS (3)
  1. COMBIVENT [Suspect]
     Indication: ASTHMA
     Dosage: DOSE PER APPLICATION: 18 MCG / 103 MCG; DAILY DOSE: 72 MCG/412 MCG
     Route: 055
     Dates: start: 2008
  2. HYDROCODONE [Concomitant]
     Indication: INTERVERTEBRAL DISC PROTRUSION
     Route: 048
  3. PROVENTIL [Concomitant]
     Indication: ASTHMA
     Route: 055

REACTIONS (3)
  - Asthenia [Not Recovered/Not Resolved]
  - Heart rate increased [Unknown]
  - Off label use [Not Recovered/Not Resolved]
